FAERS Safety Report 4876002-8 (Version None)
Quarter: 2005Q4

REPORT INFORMATION
  Report Type: 
  Country: None (occurrence: None)
  Receive Date: 20051206
  Receipt Date: 20051027
  Transmission Date: 20060501
  Serious: No
  Sender: FDA-Public Use
  Company Number: USA0510112067

PATIENT
  Age: 57 Year
  Sex: Female

DRUGS (2)
  1. CYMBALTA [Suspect]
     Indication: DEPRESSION
     Dosage: 30 MG
     Dates: start: 20051024
  2. LEVOXYL [Concomitant]

REACTIONS (4)
  - FEELING JITTERY [None]
  - INSOMNIA [None]
  - SENSATION OF BLOOD FLOW [None]
  - SENSORY DISTURBANCE [None]
